FAERS Safety Report 7974543-8 (Version None)
Quarter: 2011Q4

REPORT INFORMATION
  Report Type: 
  Country: None (occurrence: None)
  Receive Date: 20111213
  Receipt Date: 20111206
  Transmission Date: 20120403
  Serious: Yes (Hospitalization)
  Sender: FDA-Public Use
  Company Number: BR-ABBOTT-11P-020-0875680-00

PATIENT
  Sex: Female
  Weight: 90 kg

DRUGS (12)
  1. METFORMIN HYDROCHLORIDE [Concomitant]
     Indication: GLUCOSE TOLERANCE IMPAIRED
  2. LISADOR [Concomitant]
     Indication: PRODUCT USED FOR UNKNOWN INDICATION
     Dosage: 3 TO 4 TABLETS A DAY; 10MG+5MG+500MG
  3. LEVOID [Concomitant]
     Indication: HYPOTHYROIDISM
  4. ENTOCORT EC [Suspect]
     Indication: STEROID THERAPY
     Dates: start: 20111107, end: 20111108
  5. CITALOPRAM [Concomitant]
     Indication: DEPRESSION
     Route: 048
  6. HUMIRA [Suspect]
     Indication: CROHN'S DISEASE
     Route: 058
     Dates: start: 20110923
  7. WARFARIN SODIUM [Concomitant]
     Indication: ANTICOAGULANT THERAPY
     Route: 048
  8. BUP [Concomitant]
     Indication: SMOKING CESSATION THERAPY
  9. ENTOCORT EC [Suspect]
     Route: 048
  10. PREDNISONE TAB [Concomitant]
     Indication: PRODUCT USED FOR UNKNOWN INDICATION
  11. NOVALGINA [Concomitant]
     Indication: PRODUCT USED FOR UNKNOWN INDICATION
     Dosage: 3 TO 4 TABLETS A DAY
     Route: 048
  12. DESONIDE [Concomitant]
     Indication: PRODUCT USED FOR UNKNOWN INDICATION

REACTIONS (9)
  - INFECTION [None]
  - DIARRHOEA [None]
  - BLOOD GLUCOSE INCREASED [None]
  - MALAISE [None]
  - MUSCLE SPASMS [None]
  - THROMBOPHLEBITIS [None]
  - WHITE BLOOD CELL COUNT INCREASED [None]
  - BLOOD IRON DECREASED [None]
  - ABDOMINAL PAIN [None]
